FAERS Safety Report 15983372 (Version 1)
Quarter: 2019Q1

REPORT INFORMATION
  Report Type: Report from Study
  Country: TN (occurrence: TN)
  Receive Date: 20190220
  Receipt Date: 20190220
  Transmission Date: 20190418
  Serious: Yes (Death, Hospitalization)
  Sender: FDA-Public Use
  Company Number: TN-SA-2019SA046076

PATIENT
  Age: 60 Year
  Sex: Male

DRUGS (7)
  1. ASPEGIC [ACETYLSALICYLIC ACID] [Concomitant]
     Dosage: UNK
  2. CARDENSIEL [Concomitant]
     Active Substance: BISOPROLOL FUMARATE
     Dosage: UNK
  3. RAZON [Concomitant]
     Dosage: UNK
  4. VASTAREL [Concomitant]
     Active Substance: TRIMETAZIDINE DIHYDROCHLORIDE
     Dosage: UNK
  5. VASCOR [BEPRIDIL HYDROCHLORIDE MONOHYDRATE] [Concomitant]
     Dosage: UNK
  6. CLOPIDOGREL BISULFATE. [Suspect]
     Active Substance: CLOPIDOGREL BISULFATE
     Indication: CORONARY ARTERIAL STENT INSERTION
     Dosage: 75 MG (1 TABLET), QD
     Route: 048
     Dates: start: 20171230, end: 201812
  7. ALLERGICA [Concomitant]
     Dosage: UNK

REACTIONS (3)
  - Cardiac arrest [Fatal]
  - Acute respiratory failure [Fatal]
  - Pain in extremity [Fatal]

NARRATIVE: CASE EVENT DATE: 201812
